FAERS Safety Report 18241785 (Version 1)
Quarter: 2020Q3

REPORT INFORMATION
  Report Type: Report from Study
  Country: CN (occurrence: CN)
  Receive Date: 20200908
  Receipt Date: 20200908
  Transmission Date: 20201103
  Serious: Yes (Hospitalization)
  Sender: FDA-Public Use
  Company Number: CN-ELI_LILLY_AND_COMPANY-CN201811011176

PATIENT
  Sex: Female

DRUGS (7)
  1. FORSTEO [Suspect]
     Active Substance: TERIPARATIDE
     Dosage: 20 UG, DAILY
     Route: 058
     Dates: start: 20200506
  2. FORSTEO [Suspect]
     Active Substance: TERIPARATIDE
     Dosage: 20 UG, DAILY
     Route: 058
     Dates: start: 20200725
  3. CALCIUM [Concomitant]
     Active Substance: CALCIUM
     Indication: PRODUCT USED FOR UNKNOWN INDICATION
  4. FORSTEO [Suspect]
     Active Substance: TERIPARATIDE
     Indication: OSTEOPOROSIS POSTMENOPAUSAL
     Dosage: 20 UG, DAILY
     Route: 058
     Dates: start: 20181106
  5. FORSTEO [Suspect]
     Active Substance: TERIPARATIDE
     Dosage: 20 UG, WEEKLY (1/W)
     Route: 058
  6. FORSTEO [Suspect]
     Active Substance: TERIPARATIDE
     Dosage: 20 UG, 2/W
     Route: 058
  7. VITAMIN D NOS [Concomitant]
     Active Substance: VITAMIN D NOS
     Indication: PRODUCT USED FOR UNKNOWN INDICATION

REACTIONS (9)
  - Arthralgia [Recovering/Resolving]
  - Pain in extremity [Recovering/Resolving]
  - Bone pain [Recovering/Resolving]
  - Feeling hot [Recovering/Resolving]
  - Sleep disorder due to general medical condition, insomnia type [Recovering/Resolving]
  - Decreased appetite [Unknown]
  - Pain [Unknown]
  - Blood calcium increased [Unknown]
  - Back pain [Recovering/Resolving]
